FAERS Safety Report 6295697-8 (Version None)
Quarter: 2009Q3

REPORT INFORMATION
  Report Type: 
  Country: None (occurrence: None)
  Receive Date: 20090803
  Receipt Date: 20090803
  Transmission Date: 20100115
  Serious: Yes (Death)
  Sender: FDA-Public Use
  Company Number: None

PATIENT
  Sex: Male
  Weight: 102.0593 kg

DRUGS (2)
  1. CITALOPRAM HYDROBROMIDE [Suspect]
     Indication: MAJOR DEPRESSION
     Dosage: 10MG + 20MG DAILY PO
     Route: 048
     Dates: start: 20090518, end: 20090530
  2. SEROQUEL [Suspect]
     Indication: MAJOR DEPRESSION
     Dosage: 300MG DAILY PO
     Route: 048
     Dates: start: 20090523, end: 20090530

REACTIONS (3)
  - COMPLETED SUICIDE [None]
  - GUN SHOT WOUND [None]
  - THINKING ABNORMAL [None]
